FAERS Safety Report 10756089 (Version 1)
Quarter: 2015Q1

REPORT INFORMATION
  Report Type: Spontaneous
  Country: IN (occurrence: IN)
  Receive Date: 20150202
  Receipt Date: 20150202
  Transmission Date: 20150721
  Serious: Yes (Hospitalization, Other)
  Sender: FDA-Public Use
  Company Number: PHHY2015IN011749

PATIENT
  Age: 79 Year
  Sex: Female
  Weight: 55 kg

DRUGS (6)
  1. GABAPENTIN. [Suspect]
     Active Substance: GABAPENTIN
     Indication: MUSCLE SPASMS
     Dosage: 100 MG TDS
  2. BACLOFEN. [Suspect]
     Active Substance: BACLOFEN
     Indication: MUSCLE SPASMS
     Dosage: 30 MG, QD
     Route: 048
  3. GABAPENTIN. [Suspect]
     Active Substance: GABAPENTIN
     Dosage: 300 MG
     Route: 065
  4. DICLOFENAC [Concomitant]
     Active Substance: DICLOFENAC
     Indication: MUSCLE SPASMS
     Route: 065
  5. BACLOFEN. [Suspect]
     Active Substance: BACLOFEN
     Dosage: 70 MG, QD
     Route: 048
  6. BACLOFEN. [Suspect]
     Active Substance: BACLOFEN
     Dosage: 50 UG, QD
     Route: 037

REACTIONS (4)
  - Myoclonus [Recovering/Resolving]
  - Hypophagia [Recovering/Resolving]
  - Somnolence [Recovering/Resolving]
  - Muscle spasms [Recovering/Resolving]
